FAERS Safety Report 7894193-1 (Version None)
Quarter: 2011Q4

REPORT INFORMATION
  Report Type: 
  Country: None (occurrence: None)
  Receive Date: 20111104
  Receipt Date: 20111026
  Transmission Date: 20120403
  Serious: Yes (Hospitalization, Other)
  Sender: FDA-Public Use
  Company Number: US-ELI_LILLY_AND_COMPANY-US201110007913

PATIENT
  Sex: Female

DRUGS (3)
  1. NOVOLOG [Concomitant]
     Dosage: UNK
     Dates: start: 20111020
  2. HUMALOG [Suspect]
     Indication: TYPE 2 DIABETES MELLITUS
     Dosage: 32 U, PRN
     Dates: start: 19910101
  3. LANTUS [Concomitant]
     Dosage: UNK

REACTIONS (7)
  - BLINDNESS TRANSIENT [None]
  - BLOOD PRESSURE ABNORMAL [None]
  - CORONARY ARTERY DISEASE [None]
  - ANXIETY [None]
  - DRUG INEFFECTIVE [None]
  - STRESS [None]
  - BLOOD GLUCOSE INCREASED [None]
